FAERS Safety Report 5238113-7 (Version None)
Quarter: 2007Q1

REPORT INFORMATION
  Report Type: 
  Country: None (occurrence: None)
  Receive Date: 20070215
  Receipt Date: 20070207
  Transmission Date: 20070707
  Serious: Yes (Other)
  Sender: FDA-Public Use
  Company Number: US-JNJFOC-20070202295

PATIENT
  Sex: Female
  Weight: 68.04 kg

DRUGS (4)
  1. FENTANYL TRANSDERMAL SYSTEM [Suspect]
     Indication: PAIN
     Route: 062
  2. CELEBREX [Concomitant]
     Indication: ARTHRITIS
     Route: 048
  3. ULTRAM [Concomitant]
     Indication: PAIN
     Route: 048
  4. UNSPECIFIED MUSCLE RELAXER [Concomitant]
     Indication: MUSCLE RELAXANT THERAPY
     Route: 048

REACTIONS (5)
  - BLOOD PRESSURE INCREASED [None]
  - DEPRESSION [None]
  - DRUG WITHDRAWAL SYNDROME [None]
  - PAIN [None]
  - THERAPEUTIC RESPONSE DECREASED [None]
